FAERS Safety Report 9720588 (Version 3)
Quarter: 2014Q1

REPORT INFORMATION
  Report Type: Spontaneous
  Country: MX (occurrence: MX)
  Receive Date: 20131129
  Receipt Date: 20140106
  Transmission Date: 20141002
  Serious: Yes (Other)
  Sender: FDA-Public Use
  Company Number: PHHY2013MX133761

PATIENT
  Age: 62 Year
  Sex: Female
  Weight: 70 kg

DRUGS (13)
  1. FEMARA [Suspect]
     Indication: BREAST CANCER
     Dosage: 1 DF, UNK
     Route: 048
     Dates: end: 201310
  2. AFINITOR [Suspect]
     Indication: BREAST CANCER
     Dosage: 10 MG, DAILY
     Route: 048
     Dates: start: 201311
  3. AFINITOR [Suspect]
     Dosage: 1 DF(2.5MG), DAILY
     Route: 048
  4. OMEPRAZOLE [Concomitant]
     Indication: PROPHYLAXIS
     Dosage: 20 MG, DAILY
     Route: 048
     Dates: start: 201007
  5. GLUCOSAMINE [Concomitant]
     Indication: PROPHYLAXIS
     Dosage: 2 DF, ONE AT MORNING AND AT NIGHT
  6. GLUCOSAMINE [Concomitant]
     Dosage: 1 UKN, DAILY
     Dates: start: 201011
  7. CALTRATE//CALCIUM CARBONATE [Concomitant]
     Indication: SUPPLEMENTATION THERAPY
     Dosage: 2 DF, 1 AT MORNING AND 1 AT NIGHT
     Route: 048
     Dates: start: 201111
  8. CALTRATE//CALCIUM CARBONATE [Concomitant]
     Dosage: 1 UKN, DAILY
  9. STRESSTAB WITH ZINC [Concomitant]
     Indication: HYPOVITAMINOSIS
     Dosage: 3 DF, DAILY
     Route: 048
  10. STRESSTAB WITH ZINC [Concomitant]
     Dosage: 1 UKN, DAILY
     Dates: start: 201311
  11. LYRICA [Concomitant]
     Indication: RELAXATION THERAPY
     Dosage: 1 DF, AT NIGHT
     Route: 048
     Dates: start: 201211
  12. LYRICA [Concomitant]
     Indication: PAIN
  13. XGEVA [Concomitant]
     Indication: BONE CANCER
     Dosage: 1 UKN, MONTHLY
     Dates: start: 201311

REACTIONS (9)
  - Vaginal mucosal blistering [Not Recovered/Not Resolved]
  - Metastases to bone [Unknown]
  - Bone cancer [Not Recovered/Not Resolved]
  - Bone pain [Not Recovered/Not Resolved]
  - Aphthous stomatitis [Not Recovered/Not Resolved]
  - Aphagia [Not Recovered/Not Resolved]
  - Flatulence [Not Recovered/Not Resolved]
  - Drug ineffective [Not Recovered/Not Resolved]
  - Gastric disorder [Not Recovered/Not Resolved]
